FAERS Safety Report 6238457-6 (Version None)
Quarter: 2009Q2

REPORT INFORMATION
  Report Type: 
  Country: None (occurrence: None)
  Receive Date: 20090622
  Receipt Date: 20090611
  Transmission Date: 20091009
  Serious: Yes (Other)
  Sender: FDA-Public Use
  Company Number: GB-ROCHE-635467

PATIENT
  Sex: Female
  Weight: 61 kg

DRUGS (2)
  1. PEGASYS [Suspect]
     Route: 058
     Dates: start: 20090525, end: 20090527
  2. REBETOL [Suspect]
     Route: 048
     Dates: start: 20090525, end: 20090527

REACTIONS (1)
  - HEPATITIS ACUTE [None]
